FAERS Safety Report 16384055 (Version 1)
Quarter: 2019Q3

REPORT INFORMATION
  Report Type: Spontaneous
  Country: US (occurrence: US)
  Receive Date: 20190531
  Receipt Date: 20190531
  Transmission Date: 20191004
  Serious: Yes (Other)
  Sender: FDA-Public Use
  Company Number: None

PATIENT
  Age: 62 Year
  Sex: Female
  Weight: 75.6 kg

DRUGS (6)
  1. ZYRTEC [Concomitant]
     Active Substance: CETIRIZINE HYDROCHLORIDE
  2. VITAMIN D [Concomitant]
     Active Substance: VITAMIN D NOS
  3. FLONASE [Concomitant]
     Active Substance: FLUTICASONE PROPIONATE
  4. HCTZ [Concomitant]
     Active Substance: HYDROCHLOROTHIAZIDE
  5. LISINAPRIL [Concomitant]
  6. DULOXETINE DELAYED-RELEASE CAPSULES USP [Suspect]
     Active Substance: DULOXETINE
     Indication: DEPRESSION
     Dosage: ?          QUANTITY:1 CAPSULE(S);?
     Route: 048
     Dates: start: 20190501, end: 20190530

REACTIONS (1)
  - Anxiety [None]

NARRATIVE: CASE EVENT DATE: 20190531
